FAERS Safety Report 9665468 (Version 1)
Quarter: 2013Q4

REPORT INFORMATION
  Report Type: Spontaneous
  Country: US (occurrence: US)
  Receive Date: 20131104
  Receipt Date: 20131104
  Transmission Date: 20140711
  Serious: No
  Sender: FDA-Public Use
  Company Number: US-PFIZER INC-2013310018

PATIENT
  Sex: Female

DRUGS (2)
  1. CHANTIX [Suspect]
     Dosage: 0.05 MG, UNK
  2. CHANTIX [Suspect]
     Dosage: 1 MG, UNK

REACTIONS (3)
  - Nausea [Unknown]
  - Flatulence [Unknown]
  - Memory impairment [Unknown]
